FAERS Safety Report 5104589-9 (Version None)
Quarter: 2006Q3

REPORT INFORMATION
  Report Type: 
  Country: None (occurrence: None)
  Receive Date: 20060914
  Receipt Date: 20051122
  Transmission Date: 20061208
  Serious: No
  Sender: FDA-Public Use
  Company Number: US-BRISTOL-MYERS SQUIBB COMPANY-13189972

PATIENT
  Age: 56 Year
  Sex: Male
  Weight: 107 kg

DRUGS (11)
  1. BUSPAR [Suspect]
     Indication: DEPRESSION
     Route: 048
     Dates: start: 20030201
  2. AMBIEN [Concomitant]
  3. NEURONTIN [Concomitant]
  4. STADOL [Concomitant]
  5. LASIX [Concomitant]
  6. ALLOPURINOL [Concomitant]
  7. LIPITOR [Concomitant]
  8. METOPROLOL [Concomitant]
  9. QUINAPRIL [Concomitant]
  10. CLONIDINE [Concomitant]
  11. POTASSIUM [Concomitant]

REACTIONS (1)
  - HYPERTENSION [None]
